FAERS Safety Report 8928946 (Version 1)
Quarter: 2012Q4

REPORT INFORMATION
  Report Type: 
  Country: BR (occurrence: BR)
  Receive Date: 20121128
  Receipt Date: 20121128
  Transmission Date: 20130627
  Serious: Yes (Hospitalization)
  Sender: FDA-Public Use
  Company Number: BR-AMGEN-BRASP2012074322

PATIENT
  Age: 40 Year
  Sex: Female
  Weight: 67 kg

DRUGS (1)
  1. ENBREL [Suspect]
     Indication: RHEUMATOID ARTHRITIS
     Dosage: one injection, once weekly
     Dates: start: 201110, end: 201205

REACTIONS (27)
  - Fall [Unknown]
  - Swelling [Unknown]
  - Joint swelling [Unknown]
  - Oedema peripheral [Unknown]
  - Erythema [Unknown]
  - Joint lock [Unknown]
  - Feeling of despair [Unknown]
  - Depressed mood [Unknown]
  - Asthenia [Unknown]
  - Fatigue [Unknown]
  - Joint stiffness [Unknown]
  - Chondropathy [Unknown]
  - Knee deformity [Unknown]
  - Arthralgia [Unknown]
  - Impaired reasoning [Unknown]
  - Memory impairment [Unknown]
  - Nervousness [Unknown]
  - Blood pressure decreased [Unknown]
  - Therapeutic response unexpected [Unknown]
  - Depressed mood [Unknown]
  - Dizziness [Unknown]
  - Rash macular [Unknown]
  - Weight increased [Unknown]
  - Pain [Unknown]
  - Fear [Unknown]
  - Pain in extremity [Unknown]
  - Muscle rigidity [Unknown]
